FAERS Safety Report 5690830-0 (Version None)
Quarter: 2008Q2

REPORT INFORMATION
  Report Type: 
  Country: None (occurrence: None)
  Receive Date: 20080401
  Receipt Date: 20080327
  Transmission Date: 20081010
  Serious: Yes (Hospitalization)
  Sender: FDA-Public Use
  Company Number: B0514423A

PATIENT
  Age: 82 Year
  Sex: Male

DRUGS (3)
  1. AVANDIA [Suspect]
     Dosage: 4MG FOUR TIMES PER DAY
     Route: 048
     Dates: end: 20080322
  2. GLIMEPIRIDE [Concomitant]
     Route: 065
  3. ANTI-DIURETICS [Concomitant]
     Route: 065

REACTIONS (4)
  - BACK PAIN [None]
  - MADAROSIS [None]
  - MUSCULOSKELETAL CHEST PAIN [None]
  - PULMONARY OEDEMA [None]
